FAERS Safety Report 5008009-4 (Version None)
Quarter: 2006Q2

REPORT INFORMATION
  Report Type: 
  Country: None (occurrence: None)
  Receive Date: 20060404
  Receipt Date: 20050519
  Transmission Date: 20061013
  Serious: Yes (Other)
  Sender: FDA-Public Use
  Company Number: 2005054959

PATIENT
  Age: 36 Year
  Sex: Female

DRUGS (8)
  1. GEODON [Suspect]
     Indication: ILL-DEFINED DISORDER
     Dosage: 120 MG (60 MG, 2 IN 1 D), ORAL
     Route: 048
     Dates: start: 20041101, end: 20041216
  2. TRILEPTAL [Concomitant]
  3. ANTABUSE [Concomitant]
  4. HALDOL [Concomitant]
  5. TOPAMAX [Concomitant]
  6. PAXIL [Concomitant]
  7. TRAZODONE HCL [Concomitant]
  8. PROPRANOLOL [Concomitant]

REACTIONS (3)
  - MICTURITION URGENCY [None]
  - URINARY INCONTINENCE [None]
  - URINARY RETENTION [None]
